FAERS Safety Report 11419293 (Version 1)
Quarter: 2015Q3

REPORT INFORMATION
  Report Type: Spontaneous
  Country: DE (occurrence: DE)
  Receive Date: 20150826
  Receipt Date: 20150826
  Transmission Date: 20151125
  Serious: Yes (Life-Threatening)
  Sender: FDA-Public Use
  Company Number: DE-ACTAVIS-2015-17832

PATIENT
  Age: 68 Year
  Sex: Female
  Weight: 59 kg

DRUGS (15)
  1. FOLFOX-4 [Suspect]
     Active Substance: FLUOROURACIL\LEUCOVORIN CALCIUM\OXALIPLATIN
     Dosage: UNK UNK, UNKNOWN, 2 CYCLES FOLFOX
     Route: 065
     Dates: start: 2010, end: 201010
  2. IRINOTECAN (UNKNOWN) [Suspect]
     Active Substance: IRINOTECAN
     Indication: PRODUCT USED FOR UNKNOWN INDICATION
     Dosage: UNK UNK, UNKNOWN, 5 CYCLES FOLFOXIRI
     Route: 065
     Dates: start: 200907, end: 200910
  3. 5-FU                               /00098801/ [Suspect]
     Active Substance: FLUOROURACIL
     Indication: PRODUCT USED FOR UNKNOWN INDICATION
     Dosage: UNK UNK, UNKNOWN, 9TH - 10TH CYCLES MAINTENANCE TREATMENT 5-FU/LEUCOVORIN (50% OF THE DOSE)
     Route: 065
     Dates: start: 201505, end: 201506
  4. 5-FU                               /00098801/ [Suspect]
     Active Substance: FLUOROURACIL
     Dosage: UNK UNK, UNKNOWN, 5 CYCLES FOLFOXIRI
     Route: 065
     Dates: start: 200907, end: 200910
  5. LEUCOVORIN                         /00566701/ [Suspect]
     Active Substance: LEUCOVORIN
     Dosage: UNK UNK, UNKNOWN, 6TH CYCLE MAINTENANCE TREATMENT 5-FU/LEUCOVORIN (75% OF THE DOSE)
     Route: 065
     Dates: start: 201502, end: 201503
  6. LEUCOVORIN                         /00566701/ [Suspect]
     Active Substance: LEUCOVORIN
     Dosage: UNK UNK, UNKNOWN, 5TH CYCLE MAINTENANCE TREATMENT 5-FU/LEUCOVORIN (50% OF THE DOSE)
     Route: 065
     Dates: end: 201501
  7. 5-FU                               /00098801/ [Suspect]
     Active Substance: FLUOROURACIL
     Dosage: UNK UNK, UNKNOWN, 5TH CYCLE MAINTENANCE TREATMENT 5-FU/LEUCOVORIN (50% OF THE DOSE)
     Route: 065
     Dates: start: 20150114
  8. 5-FU                               /00098801/ [Suspect]
     Active Substance: FLUOROURACIL
     Dosage: UNK UNK, UNKNOWN, 4 CYCLES MAINTENANCE TREATMENT 5-FU/LEUCOVORIN (50% OF THE DOSE)
     Route: 065
     Dates: start: 201410, end: 201412
  9. FOLSAEURE [Suspect]
     Active Substance: FOLIC ACID
     Indication: PRODUCT USED FOR UNKNOWN INDICATION
     Dosage: UNK UNK, UNKNOWN, 5 CYCLES FOLFOXIRI
     Route: 065
     Dates: start: 200907, end: 200910
  10. 5-FU                               /00098801/ [Suspect]
     Active Substance: FLUOROURACIL
     Dosage: UNK UNK, UNKNOWN, 6TH CYCLE MAINTENANCE TREATMENT 5-FU/LEUCOVORIN (75% OF THE DOSE)
     Route: 065
     Dates: start: 201502, end: 201503
  11. FOLFOX-4 [Suspect]
     Active Substance: FLUOROURACIL\LEUCOVORIN CALCIUM\OXALIPLATIN
     Indication: PRODUCT USED FOR UNKNOWN INDICATION
     Dosage: UNK UNK, UNKNOWN, 12 CYCLES FOLFOX 875% OF THE DOSE IN COMBINATION WITH AVASTIN
     Route: 065
     Dates: start: 201402, end: 201408
  12. LEUCOVORIN                         /00566701/ [Suspect]
     Active Substance: LEUCOVORIN
     Dosage: UNK UNK, UNKNOWN, 4 CYCLES MAINTENANCE TREATMENT 5-FU/LEUCOVORIN (50% OF THE DOSE)
     Route: 065
     Dates: start: 201410, end: 201412
  13. OXALIPLATIN (UNKNOWN) [Suspect]
     Active Substance: OXALIPLATIN
     Indication: PRODUCT USED FOR UNKNOWN INDICATION
     Dosage: UNK UNK, UNKNOWN, 5 CYCLES FOLFOXIRI
     Route: 065
     Dates: start: 200907, end: 200910
  14. LEUCOVORIN                         /00566701/ [Suspect]
     Active Substance: LEUCOVORIN
     Indication: PRODUCT USED FOR UNKNOWN INDICATION
     Dosage: UNK UNK, UNKNOWN, 9TH - 10TH CYCLE MAINTENANCE TREATMENT 5-FU/LEUCOVORIN (50% OF THE DOSE)
     Route: 065
     Dates: start: 201505, end: 201506
  15. AVASTIN [Suspect]
     Active Substance: BEVACIZUMAB
     Indication: PRODUCT USED FOR UNKNOWN INDICATION
     Dosage: UNK UNK, UNKNOWN, 12 CYCLES FOLFOX 875% OF THE DOSE IN COMBINATION WITH AVASTIN
     Route: 065
     Dates: end: 201408

REACTIONS (1)
  - Acute lymphocytic leukaemia [Not Recovered/Not Resolved]

NARRATIVE: CASE EVENT DATE: 201507
